FAERS Safety Report 20491844 (Version 4)
Quarter: 2022Q2

REPORT INFORMATION
  Report Type: Spontaneous
  Country: US (occurrence: US)
  Receive Date: 20220218
  Receipt Date: 20220526
  Transmission Date: 20220721
  Serious: Yes (Other)
  Sender: FDA-Public Use
  Company Number: US-PFIZER INC-202101812700

PATIENT
  Age: 64 Year
  Sex: Female

DRUGS (4)
  1. IBRANCE [Suspect]
     Active Substance: PALBOCICLIB
     Dosage: 125 MG
     Dates: start: 20211201
  2. IBRANCE [Suspect]
     Active Substance: PALBOCICLIB
     Dosage: 125 MG
     Dates: start: 20211208
  3. IBRANCE [Suspect]
     Active Substance: PALBOCICLIB
     Dosage: 125 MG
     Dates: start: 20220101
  4. IBRANCE [Suspect]
     Active Substance: PALBOCICLIB
     Dosage: UNK
     Dates: start: 20220110

REACTIONS (18)
  - Lymphoid tissue operation [Unknown]
  - Product dose omission in error [Unknown]
  - Nausea [Recovering/Resolving]
  - Phantom limb syndrome [Unknown]
  - Headache [Unknown]
  - Hypoaesthesia [Unknown]
  - Dizziness [Unknown]
  - Feeling abnormal [Unknown]
  - Gait disturbance [Unknown]
  - Lung disorder [Unknown]
  - Skin induration [Unknown]
  - Pruritus [Unknown]
  - Pain in extremity [Unknown]
  - Hypoaesthesia [Unknown]
  - Carbohydrate antigen 27.29 increased [Unknown]
  - Lymphadenopathy [Unknown]
  - Dyspepsia [Recovered/Resolved]
  - Photophobia [Unknown]
